FAERS Safety Report 7756497-2 (Version None)
Quarter: 2011Q3

REPORT INFORMATION
  Report Type: 
  Country: None (occurrence: None)
  Receive Date: 20110916
  Receipt Date: 20110909
  Transmission Date: 20111222
  Serious: Yes (Hospitalization)
  Sender: FDA-Public Use
  Company Number: US-VERTEX PHARMACEUTICALS INC.-AE-2011-001267

PATIENT
  Age: 59 Year
  Sex: Female

DRUGS (7)
  1. NORVASC [Concomitant]
     Indication: BLOOD PRESSURE
  2. PEGINTERFERON [Concomitant]
     Indication: HEPATITIS C
     Dates: start: 20110701
  3. FLEXERIL [Concomitant]
  4. NORMODYNE [Concomitant]
     Indication: BLOOD PRESSURE
  5. INCIVEK [Suspect]
     Indication: HEPATITIS C
     Dates: start: 20110701, end: 20110831
  6. HYDROCHLOROTHIAZIDE [Concomitant]
     Indication: BLOOD PRESSURE
  7. RIBAVIRIN [Concomitant]
     Indication: HEPATITIS C
     Dates: start: 20110701

REACTIONS (2)
  - SYNCOPE [None]
  - DIZZINESS [None]
